FAERS Safety Report 15344172 (Version 6)
Quarter: 2018Q4

REPORT INFORMATION
  Report Type: Spontaneous
  Country: JP (occurrence: JP)
  Receive Date: 20180903
  Receipt Date: 20181120
  Transmission Date: 20190204
  Serious: Yes (Hospitalization, Other)
  Sender: FDA-Public Use
  Company Number: JP-GLAXOSMITHKLINE-JP2018JPN155313

PATIENT
  Age: 33 Year
  Sex: Male
  Weight: 65 kg

DRUGS (3)
  1. ZYPREXA [Concomitant]
     Active Substance: OLANZAPINE
     Dosage: UNK
  2. LAMICTAL [Suspect]
     Active Substance: LAMOTRIGINE
     Indication: DEPRESSION
     Dosage: 25 MG, QOD
     Route: 048
     Dates: start: 20171023, end: 20171109
  3. DEPAKENE [Suspect]
     Active Substance: VALPROIC ACID
     Dosage: UNK
     Route: 048

REACTIONS (13)
  - Macule [Recovering/Resolving]
  - Skin erosion [Recovering/Resolving]
  - Rash [Recovering/Resolving]
  - Pyrexia [Recovering/Resolving]
  - Lip erosion [Recovering/Resolving]
  - Scab [Recovering/Resolving]
  - Hyperbilirubinaemia [Recovering/Resolving]
  - Generalised erythema [Recovering/Resolving]
  - Jaundice [Unknown]
  - Toxic epidermal necrolysis [Recovered/Resolved]
  - Hepatic function abnormal [Unknown]
  - Oral mucosa erosion [Recovering/Resolving]
  - Eyelid erosion [Recovering/Resolving]

NARRATIVE: CASE EVENT DATE: 20171106
